FAERS Safety Report 5064894-1 (Version None)
Quarter: 2006Q3

REPORT INFORMATION
  Report Type: 
  Country: None (occurrence: None)
  Receive Date: 20060725
  Receipt Date: 20060712
  Transmission Date: 20061208
  Serious: Yes (Other)
  Sender: FDA-Public Use
  Company Number: US200607001919

PATIENT
  Sex: Female

DRUGS (4)
  1. HUMULIN R [Suspect]
     Dates: start: 19840101
  2. HUMULIN N [Suspect]
     Dates: start: 19840101
  3. HUMALOG [Suspect]
     Dosage: SLIDING SCALE
     Dates: start: 20051101
  4. LANTUS [Concomitant]

REACTIONS (12)
  - ACCIDENTAL EXPOSURE [None]
  - ANKLE FRACTURE [None]
  - BLOOD GLUCOSE DECREASED [None]
  - BLOOD GLUCOSE INCREASED [None]
  - CIRCUMSTANCE OR INFORMATION CAPABLE OF LEADING TO MEDICATION ERROR [None]
  - COMPLEX REGIONAL PAIN SYNDROME [None]
  - FEELING ABNORMAL [None]
  - NAUSEA [None]
  - NERVE INJURY [None]
  - NEUROPATHY PERIPHERAL [None]
  - PHARMACEUTICAL PRODUCT COMPLAINT [None]
  - WEIGHT DECREASED [None]
